FAERS Safety Report 7519248-2 (Version None)
Quarter: 2011Q2

REPORT INFORMATION
  Report Type: 
  Country: None (occurrence: None)
  Receive Date: 20110602
  Receipt Date: 20050928
  Transmission Date: 20111010
  Serious: Yes (Hospitalization)
  Sender: FDA-Public Use
  Company Number: PHEH2005US10817

PATIENT
  Age: 71 Year
  Sex: Female

DRUGS (3)
  1. ANTI-THYMOCYTE GLOBULIN NOS [Suspect]
     Dosage: 3350 MG, UNK
     Dates: start: 20010508
  2. CYCLOSPORINE [Suspect]
     Indication: MYELODYSPLASTIC SYNDROME
     Dosage: 250 MG, UNK
     Route: 048
     Dates: start: 20010508
  3. SOLU-MEDROL [Suspect]
     Indication: MYELODYSPLASTIC SYNDROME
     Dosage: 125 MG, UNK
     Route: 048
     Dates: start: 20010508

REACTIONS (12)
  - RESPIRATORY FAILURE [None]
  - BLOOD CREATININE INCREASED [None]
  - BLOOD UREA INCREASED [None]
  - BLOOD LACTATE DEHYDROGENASE INCREASED [None]
  - PULMONARY OEDEMA [None]
  - RALES [None]
  - ASPARTATE AMINOTRANSFERASE INCREASED [None]
  - LUNG INFILTRATION [None]
  - ALANINE AMINOTRANSFERASE INCREASED [None]
  - PULMONARY CONGESTION [None]
  - DYSPNOEA [None]
  - RENAL FAILURE ACUTE [None]
